FAERS Safety Report 9125598 (Version 1)
Quarter: 2013Q1

REPORT INFORMATION
  Report Type: Spontaneous
  Country: CA (occurrence: CA)
  Receive Date: 20130227
  Receipt Date: 20130227
  Transmission Date: 20140127
  Serious: Yes (Hospitalization)
  Sender: FDA-Public Use
  Company Number: CA-B.I. PHARMACEUTICALS,INC./RIDGEFIELD-2013-CN-00285CN

PATIENT
  Age: 89 Year
  Sex: Female
  Weight: 55 kg

DRUGS (6)
  1. PRADAX [Suspect]
     Dosage: 110 MG
     Route: 048
  2. BETAHISTINE [Concomitant]
  3. CALCIUM + VITAMIN D [Concomitant]
  4. FLORINEF [Concomitant]
  5. LAXATIVES [Concomitant]
  6. SYNTHROID [Concomitant]

REACTIONS (16)
  - Anaemia [Recovered/Resolved]
  - Blood creatinine increased [Recovered/Resolved]
  - Blood lactic acid increased [Recovered/Resolved]
  - Blood pressure decreased [Recovered/Resolved]
  - Dizziness [Recovered/Resolved]
  - Haemoglobin decreased [Recovered/Resolved]
  - Hypovolaemic shock [Recovered/Resolved]
  - International normalised ratio increased [Recovered/Resolved]
  - Lipoma [Recovered/Resolved]
  - Melaena [Recovered/Resolved]
  - Multi-organ failure [Recovered/Resolved]
  - Pneumonia [Recovered/Resolved]
  - Respiratory distress [Recovered/Resolved]
  - Sepsis [Recovered/Resolved]
  - Shock [Recovered/Resolved]
  - Small intestinal haemorrhage [Recovered/Resolved]
